FAERS Safety Report 12850610 (Version 1)
Quarter: 2016Q4

REPORT INFORMATION
  Report Type: Not Available
  Country: US (occurrence: US)
  Receive Date: 20161014
  Receipt Date: 20161014
  Transmission Date: 20170207
  Serious: No
  Sender: FDA-Public Use
  Company Number: US-ANIPHARMA-2016-US-000039

PATIENT
  Age: 44 Year
  Sex: Female
  Weight: 83.92 kg

DRUGS (6)
  1. CELEBREX [Concomitant]
     Active Substance: CELECOXIB
     Dosage: 400MG PO  2-3 TIME DAILY
     Route: 048
     Dates: start: 20150722, end: 20150731
  2. HYDROXYCHLOROQUINE [Concomitant]
     Active Substance: HYDROXYCHLOROQUINE
     Dosage: 200 MG PO BID
     Route: 048
     Dates: start: 20150710
  3. ETODOLAC (NON-SPECIFIC) [Suspect]
     Active Substance: ETODOLAC
     Dosage: 400 MG PO 2-3 TIMES DAILY
     Route: 048
     Dates: start: 20150826
  4. ZANTAC [Concomitant]
     Active Substance: RANITIDINE HYDROCHLORIDE
     Dosage: 150MG PO QD
     Route: 048
     Dates: start: 20150901
  5. VITAMIN D3 [Concomitant]
     Active Substance: CHOLECALCIFEROL
     Route: 048
  6. VITAMIN B12 [Concomitant]
     Active Substance: CYANOCOBALAMIN

REACTIONS (2)
  - Drug ineffective [Unknown]
  - Drug effect incomplete [None]

NARRATIVE: CASE EVENT DATE: 20150826
